FAERS Safety Report 6000052-1 (Version None)
Quarter: 2008Q4

REPORT INFORMATION
  Report Type: 
  Country: None (occurrence: None)
  Receive Date: 20081215
  Receipt Date: 20081205
  Transmission Date: 20090506
  Serious: Yes (Life-Threatening)
  Sender: FDA-Public Use
  Company Number: B0518025C

PATIENT
  Sex: Male

DRUGS (6)
  1. LAMICTAL [Suspect]
     Dosage: 100MG PER DAY
     Dates: end: 20080408
  2. URBANYL [Suspect]
     Dosage: 10MG PER DAY
     Dates: end: 20080408
  3. ALEPSAL [Suspect]
     Dosage: 150MG PER DAY
     Dates: end: 20080408
  4. VALIUM [Suspect]
     Dates: end: 20080408
  5. DI-HYDAN [Suspect]
     Dosage: 300MG PER DAY
     Dates: end: 20080408
  6. ZYPREXA [Suspect]
     Dosage: 1UNIT PER DAY
     Dates: end: 20080408

REACTIONS (4)
  - BRADYCARDIA FOETAL [None]
  - DRUG EXPOSURE DURING PREGNANCY [None]
  - FOETAL GROWTH RETARDATION [None]
  - PREMATURE BABY [None]
